FAERS Safety Report 8795494 (Version 2)
Quarter: 2012Q4

REPORT INFORMATION
  Report Type: 
  Country: US (occurrence: US)
  Receive Date: 20120918
  Receipt Date: 20121113
  Transmission Date: 20130627
  Serious: Yes (Death)
  Sender: FDA-Public Use
  Company Number: US-TEVA-358734USA

PATIENT
  Sex: Male

DRUGS (1)
  1. ACTIQ [Suspect]
     Indication: NEOPLASM MALIGNANT
     Dosage: high dose
     Route: 002

REACTIONS (1)
  - Pneumonia [Fatal]
